FAERS Safety Report 6279529-X (Version None)
Quarter: 2009Q3

REPORT INFORMATION
  Report Type: 
  Country: None (occurrence: None)
  Receive Date: 20090723
  Receipt Date: 20090715
  Transmission Date: 20100115
  Serious: Yes (Other)
  Sender: FDA-Public Use
  Company Number: US-JNJFOC-20090705622

PATIENT
  Sex: Female

DRUGS (19)
  1. DURAGESIC-100 [Suspect]
     Route: 062
  2. DURAGESIC-100 [Suspect]
     Indication: BACK PAIN
     Route: 062
  3. FENTANYL TRANSDERMAL SYSTEM [Suspect]
     Indication: BACK PAIN
     Route: 062
  4. AMBIEN [Suspect]
     Indication: INSOMNIA
     Route: 048
  5. DILAUDID [Concomitant]
     Indication: BREAKTHROUGH PAIN
     Route: 048
  6. PHENERGAN [Concomitant]
     Indication: GASTRIC DISORDER
     Route: 048
  7. LEVOTHYROXINE SODIUM [Concomitant]
     Indication: THYROID DISORDER
     Route: 048
  8. QUININE SULFATE [Concomitant]
     Indication: MUSCLE SPASMS
     Route: 048
  9. POTASSIUM CHLORIDE [Concomitant]
     Indication: BLOOD POTASSIUM ABNORMAL
     Route: 048
  10. LUNESTA [Concomitant]
     Indication: INSOMNIA
     Route: 048
  11. CARAFATE [Concomitant]
     Indication: MUSCLE SPASTICITY
     Route: 048
  12. SODIUM [Concomitant]
     Indication: ANTIDIURETIC HORMONE ABNORMALITY
     Route: 048
  13. ADIPEX [Concomitant]
     Indication: ATTENTION DEFICIT/HYPERACTIVITY DISORDER
     Route: 048
  14. CARISOPRODOL [Concomitant]
     Indication: MUSCLE SPASMS
     Route: 048
  15. NEXIUM [Concomitant]
     Indication: GASTROOESOPHAGEAL REFLUX DISEASE
     Route: 048
  16. LASIX [Concomitant]
     Indication: ANTIDIURETIC HORMONE ABNORMALITY
     Route: 048
  17. IBUPROFEN [Concomitant]
     Indication: PAIN
     Route: 048
  18. TYLENOL [Concomitant]
     Indication: PAIN
     Route: 048
  19. NORVASC [Concomitant]
     Indication: BLOOD PRESSURE ABNORMAL
     Route: 048

REACTIONS (5)
  - ALCOHOL POISONING [None]
  - INAPPROPRIATE SCHEDULE OF DRUG ADMINISTRATION [None]
  - LOSS OF CONSCIOUSNESS [None]
  - PANIC ATTACK [None]
  - SUICIDAL IDEATION [None]
